FAERS Safety Report 19815913 (Version 1)
Quarter: 2021Q3

REPORT INFORMATION
  Report Type: Spontaneous
  Country: US (occurrence: US)
  Receive Date: 20210909
  Receipt Date: 20210909
  Transmission Date: 20211014
  Serious: No
  Sender: FDA-Public Use
  Company Number: US-NKFPHARMA-2021MPSPO00019

PATIENT
  Sex: Male

DRUGS (2)
  1. ENOXAPARIN SODIUM INJECTION, USP 80MG/0.8ML (100MG PER ML) [Suspect]
     Active Substance: ENOXAPARIN SODIUM
  2. ENOXAPARIN SODIUM INJECTION, USP 80MG/0.8ML (100MG PER ML) [Suspect]
     Active Substance: ENOXAPARIN SODIUM
     Indication: PRODUCT USED FOR UNKNOWN INDICATION
     Route: 058

REACTIONS (2)
  - Syringe issue [Unknown]
  - No adverse event [Unknown]
